FAERS Safety Report 10238781 (Version 1)
Quarter: 2014Q2

REPORT INFORMATION
  Report Type: Report from Study
  Country: US (occurrence: US)
  Receive Date: 20140616
  Receipt Date: 20140616
  Transmission Date: 20141212
  Serious: Yes (Other)
  Sender: FDA-Public Use
  Company Number: US-ROCHE-1415283

PATIENT
  Sex: Female
  Weight: 43.58 kg

DRUGS (1)
  1. AVASTIN [Suspect]
     Indication: RETINAL VEIN OCCLUSION
     Route: 031
     Dates: start: 2013, end: 2014

REACTIONS (3)
  - Ocular hyperaemia [Unknown]
  - Eye haemorrhage [Unknown]
  - Visual acuity reduced [Unknown]
